FAERS Safety Report 5723146-4 (Version None)
Quarter: 2008Q2

REPORT INFORMATION
  Report Type: 
  Country: None (occurrence: None)
  Receive Date: 20080430
  Receipt Date: 20080421
  Transmission Date: 20081010
  Serious: Yes (Other)
  Sender: FDA-Public Use
  Company Number: PHBS2008ES04211

PATIENT
  Age: 74 Year
  Sex: Male

DRUGS (3)
  1. ZOLEDRONIC ACID [Suspect]
     Dosage: 4 MG/21 DAYS
     Route: 042
  2. DOCETAXEL [Concomitant]
     Dosage: 75 MG/M2, UNK
  3. PREDNISOLONE [Concomitant]
     Dosage: 10 MG/DAY
     Route: 048

REACTIONS (3)
  - OSTEONECROSIS [None]
  - PAIN IN JAW [None]
  - TOOTH EXTRACTION [None]
